FAERS Safety Report 8778747 (Version 2)
Quarter: 2012Q4

REPORT INFORMATION
  Report Type: 
  Country: US (occurrence: US)
  Receive Date: 20120912
  Receipt Date: 20121029
  Transmission Date: 20130627
  Serious: No
  Sender: FDA-Public Use
  Company Number: US-PFIZER INC-2012221162

PATIENT
  Age: 49 Year
  Sex: Female

DRUGS (1)
  1. TOVIAZ [Suspect]
     Indication: STRESS URINARY INCONTINENCE
     Dosage: 4 mg, UNK
     Route: 048
     Dates: start: 201204

REACTIONS (3)
  - Discomfort [Unknown]
  - Abdominal pain [Unknown]
  - Malaise [Unknown]
